FAERS Safety Report 13356916 (Version 1)
Quarter: 2017Q1

REPORT INFORMATION
  Report Type: Spontaneous
  Country: US (occurrence: US)
  Receive Date: 20170321
  Receipt Date: 20170321
  Transmission Date: 20170429
  Serious: No
  Sender: FDA-Public Use
  Company Number: US-ASTRAZENECA-2017SE27040

PATIENT
  Age: 30761 Day
  Sex: Male
  Weight: 59.9 kg

DRUGS (4)
  1. PULMICORT FLEXHALER [Suspect]
     Active Substance: BUDESONIDE
     Indication: ASTHMA
     Route: 055
     Dates: start: 20170310
  2. VENTOLIN [Concomitant]
     Active Substance: ALBUTEROL SULFATE
     Indication: DYSPNOEA
     Dosage: AS REQUIRED
     Route: 055
  3. FLOVENT [Concomitant]
     Active Substance: FLUTICASONE PROPIONATE
     Indication: DYSPNOEA
     Dosage: AS REQUIRED
     Route: 055
  4. ALBUAL NEBULIZER [Concomitant]
     Indication: ASTHMA
     Dosage: AS REQUIRED
     Route: 055

REACTIONS (3)
  - Drug ineffective [Not Recovered/Not Resolved]
  - Weight increased [Unknown]
  - Asthma [Unknown]

NARRATIVE: CASE EVENT DATE: 20170310
